FAERS Safety Report 7509000-6 (Version None)
Quarter: 2011Q2

REPORT INFORMATION
  Report Type: 
  Country: None (occurrence: None)
  Receive Date: 20110527
  Receipt Date: 20110523
  Transmission Date: 20111010
  Serious: Yes (Hospitalization, Other)
  Sender: FDA-Public Use
  Company Number: SA-SANOFI-AVENTIS-2011SA030731

PATIENT
  Age: 5 Year
  Sex: Female
  Weight: 19 kg

DRUGS (3)
  1. SOLOSTAR [Suspect]
     Dates: start: 20101001
  2. LANTUS [Suspect]
     Indication: DIABETES MELLITUS
     Route: 058
     Dates: start: 20101001
  3. REGULAR INSULIN [Concomitant]
     Indication: DIABETES MELLITUS
     Route: 065

REACTIONS (2)
  - TRANSIENT ISCHAEMIC ATTACK [None]
  - OFF LABEL USE [None]
